FAERS Safety Report 21999715 (Version 1)
Quarter: 2023Q1

REPORT INFORMATION
  Report Type: Spontaneous
  Country: US (occurrence: None)
  Receive Date: 20230214
  Receipt Date: 20230214
  Transmission Date: 20230418
  Serious: Yes (Death)
  Sender: FDA-Public Use
  Company Number: None

PATIENT
  Sex: Female

DRUGS (6)
  1. NORDITROPIN [Suspect]
     Active Substance: SOMATROPIN
     Indication: Hypopituitarism
     Dosage: OTHER QUANTITY : 15MG/1.5ML;?FREQUENCY : 3 TIMES A WEEK;?ADMINISTER 0.9 MG UNDER THE SKIN (SUBCUTANE
     Route: 058
     Dates: start: 20150909
  2. LEVOTHYROXIN TAB 50MCG [Concomitant]
  3. METFORMIN TAB 1000MG [Concomitant]
  4. METFORMIN TAB 500MG ER [Concomitant]
  5. MULTI VITAMI TAB MINERALS [Concomitant]
  6. SYNTHROID TAB 125MCG [Concomitant]

REACTIONS (1)
  - Death [None]
